FAERS Safety Report 5594665-9 (Version None)
Quarter: 2008Q1

REPORT INFORMATION
  Report Type: 
  Country: None (occurrence: None)
  Receive Date: 20080115
  Receipt Date: 20080102
  Transmission Date: 20080703
  Serious: Yes (Hospitalization)
  Sender: FDA-Public Use
  Company Number: DSA_31170_2008

PATIENT
  Age: 77 Year
  Sex: Male

DRUGS (3)
  1. ORFIDAL (ORFIDAL - LORAZEPAM) 1 MG [Suspect]
     Indication: DRUG USE FOR UNKNOWN INDICATION
     Dosage: (1 MG QD ORAL)
     Route: 048
     Dates: start: 20070429, end: 20070504
  2. HALOPERIDOL [Suspect]
     Indication: DRUG USE FOR UNKNOWN INDICATION
     Dosage: (DF)
  3. SINOGAN /00038601/ (SINOGAN - LEVOMEPROMAZINE) (NOT SPECIFIED) [Suspect]
     Indication: DRUG USE FOR UNKNOWN INDICATION
     Dosage: (DF)

REACTIONS (6)
  - DRUG INTERACTION [None]
  - LOSS OF CONSCIOUSNESS [None]
  - PCO2 INCREASED [None]
  - PO2 DECREASED [None]
  - SENSORY LOSS [None]
  - WHITE BLOOD CELL COUNT INCREASED [None]
